FAERS Safety Report 4883564-3 (Version None)
Quarter: 2006Q1

REPORT INFORMATION
  Report Type: 
  Country: None (occurrence: None)
  Receive Date: 20060117
  Receipt Date: 20060117
  Transmission Date: 20060701
  Serious: No
  Sender: FDA-Public Use
  Company Number: None

PATIENT
  Sex: Male
  Weight: 113.3993 kg

DRUGS (1)
  1. AVANDIA [Suspect]
     Indication: DIABETES MELLITUS
     Dosage: 4MG   TWICE DAILY  PO
     Route: 048
     Dates: start: 20020101, end: 20050107

REACTIONS (10)
  - CATARACT [None]
  - COLOUR BLINDNESS ACQUIRED [None]
  - ECONOMIC PROBLEM [None]
  - ILLUSION [None]
  - LOSS OF EMPLOYMENT [None]
  - MACULAR OEDEMA [None]
  - NIGHT BLINDNESS [None]
  - RETINAL DETACHMENT [None]
  - RETINAL HAEMORRHAGE [None]
  - SUICIDAL IDEATION [None]
